FAERS Safety Report 24301581 (Version 1)
Quarter: 2024Q3

REPORT INFORMATION
  Report Type: Report from Study
  Country: CA (occurrence: CA)
  Receive Date: 20240910
  Receipt Date: 20240910
  Transmission Date: 20241016
  Serious: Yes (Other)
  Sender: ABBVIE
  Company Number: CA-ABBVIE-5906875

PATIENT
  Age: 12 Year
  Sex: Female

DRUGS (8)
  1. BOTOX [Suspect]
     Active Substance: ONABOTULINUMTOXINA
     Indication: Migraine
     Dosage: TIME INTERVAL: AS NECESSARY: EVERY THREE MONTHS
     Route: 030
  2. GABAPENTIN [Concomitant]
     Active Substance: GABAPENTIN
     Indication: Product used for unknown indication
     Dates: start: 2019, end: 2020
  3. TRAMADOL [Concomitant]
     Active Substance: TRAMADOL\TRAMADOL HYDROCHLORIDE
     Indication: Pain
  4. AMITRIPTYLINE [Concomitant]
     Active Substance: AMITRIPTYLINE
     Indication: Product used for unknown indication
     Dates: start: 2014
  5. AMITRIPTYLINE [Concomitant]
     Active Substance: AMITRIPTYLINE
     Indication: Product used for unknown indication
     Dates: start: 202109, end: 202112
  6. PREGABALIN [Concomitant]
     Active Substance: PREGABALIN
     Indication: Product used for unknown indication
     Dates: start: 2018, end: 2019
  7. ALMOTRIPTAN [Concomitant]
     Active Substance: ALMOTRIPTAN
     Indication: Product used for unknown indication
     Dates: start: 2013, end: 2014
  8. NORTRIPTYLINE [Concomitant]
     Active Substance: NORTRIPTYLINE
     Indication: Product used for unknown indication

REACTIONS (29)
  - Oral surgery [Recovering/Resolving]
  - Night sweats [Unknown]
  - Panic attack [Unknown]
  - Hypoaesthesia [Unknown]
  - Tooth injury [Unknown]
  - Gingival injury [Unknown]
  - Pain [Unknown]
  - Dyspepsia [Unknown]
  - Photosensitivity reaction [Unknown]
  - Headache [Not Recovered/Not Resolved]
  - Weight increased [Unknown]
  - Paraesthesia [Unknown]
  - Pain in jaw [Unknown]
  - Nausea [Unknown]
  - Brain fog [Unknown]
  - Dizziness [Unknown]
  - Renal pain [Unknown]
  - Fatigue [Unknown]
  - Tremor [Unknown]
  - Eye disorder [Unknown]
  - Migraine [Unknown]
  - Mood altered [Unknown]
  - Urinary tract infection [Unknown]
  - Somnolence [Unknown]
  - Hyperacusis [Unknown]
  - Hyperaesthesia [Unknown]
  - Mental disorder [Unknown]
  - Anger [Unknown]
  - Therapeutic product effect incomplete [Unknown]
